FAERS Safety Report 5733040-0 (Version None)
Quarter: 2008Q2

REPORT INFORMATION
  Report Type: 
  Country: None (occurrence: None)
  Receive Date: 20080509
  Receipt Date: 20080428
  Transmission Date: 20081010
  Serious: Yes (Hospitalization)
  Sender: FDA-Public Use
  Company Number: FR-BAYER-200710188BFR

PATIENT
  Age: 22 Year
  Sex: Male
  Weight: 64 kg

DRUGS (2)
  1. IZILOX [Suspect]
     Indication: INFLUENZA
     Route: 048
     Dates: start: 20070228, end: 20070302
  2. ADVIL [Concomitant]
     Indication: INFLUENZA

REACTIONS (4)
  - APHTHOUS STOMATITIS [None]
  - CHAPPED LIPS [None]
  - CHEILITIS [None]
  - ORAL DISORDER [None]
